FAERS Safety Report 6167562-8 (Version None)
Quarter: 2009Q2

REPORT INFORMATION
  Report Type: 
  Country: None (occurrence: None)
  Receive Date: 20090424
  Receipt Date: 20090126
  Transmission Date: 20091009
  Serious: No
  Sender: FDA-Public Use
  Company Number: US-BAYER-200910908BCC

PATIENT
  Age: 15 Year
  Sex: Female

DRUGS (1)
  1. MIDOL [Suspect]
     Indication: INTENTIONAL OVERDOSE
     Dosage: TOTAL DAILY DOSE: 1760 MG  UNIT DOSE: 220 MG
     Route: 048
     Dates: start: 20090126, end: 20090126

REACTIONS (1)
  - NO ADVERSE EVENT [None]
